FAERS Safety Report 14336944 (Version 1)
Quarter: 2017Q4

REPORT INFORMATION
  Report Type: Spontaneous
  Country: US (occurrence: US)
  Receive Date: 20171228
  Receipt Date: 20171228
  Transmission Date: 20180321
  Serious: No
  Sender: FDA-Public Use
  Company Number: None

PATIENT
  Age: 81 Year
  Sex: Male
  Weight: 63 kg

DRUGS (1)
  1. AMIODARONE [Suspect]
     Active Substance: AMIODARONE
     Dosage: ?          OTHER ROUTE:PER NG TUBE?
     Dates: start: 20171221, end: 20171225

REACTIONS (1)
  - Leukopenia [None]

NARRATIVE: CASE EVENT DATE: 20171224
